FAERS Safety Report 20117297 (Version 1)
Quarter: 2021Q4

REPORT INFORMATION
  Report Type: Other
  Country: NL (occurrence: None)
  Receive Date: 20211126
  Receipt Date: 20211126
  Transmission Date: 20220303
  Serious: Yes (Other)
  Sender: FDA-Public Use
  Company Number: NL-ROCHE-2926097

PATIENT

DRUGS (1)
  1. ALTEPLASE [Suspect]
     Active Substance: ALTEPLASE
     Indication: Ischaemic stroke
     Route: 042

REACTIONS (15)
  - Haemorrhage intracranial [Unknown]
  - Haemorrhagic infarction [Unknown]
  - Cerebral haematoma [Unknown]
  - Subarachnoid haemorrhage [Unknown]
  - Cerebral haemorrhage [Unknown]
  - Embolism [Unknown]
  - Infarction [Unknown]
  - Cerebral infarction [Unknown]
  - Stroke in evolution [Unknown]
  - Pneumonia [Unknown]
  - Haemorrhage [Unknown]
  - Ischaemic stroke [Unknown]
  - Myocardial ischaemia [Unknown]
  - Hypersensitivity [Unknown]
  - Infection [Unknown]
